FAERS Safety Report 18980605 (Version 1)
Quarter: 2021Q1

REPORT INFORMATION
  Report Type: Spontaneous
  Country: DK (occurrence: DK)
  Receive Date: 20210308
  Receipt Date: 20210308
  Transmission Date: 20210420
  Serious: Yes (Hospitalization, Other)
  Sender: FDA-Public Use
  Company Number: DK-TAKEDA-2021TUS012197

PATIENT
  Age: 69 Year
  Sex: Male

DRUGS (1)
  1. 422 (ANAGRELIDE) [Suspect]
     Active Substance: ANAGRELIDE
     Indication: ESSENTIAL THROMBOCYTHAEMIA
     Dosage: UNK
     Route: 065

REACTIONS (6)
  - Headache [Recovering/Resolving]
  - Meningitis bacterial [Recovering/Resolving]
  - Musculoskeletal stiffness [Recovering/Resolving]
  - Meningitis pneumococcal [Recovering/Resolving]
  - Community acquired infection [Recovering/Resolving]
  - Confusional state [Recovering/Resolving]
